FAERS Safety Report 21044299 (Version 2)
Quarter: 2022Q3

REPORT INFORMATION
  Report Type: Report from Study
  Country: US (occurrence: US)
  Receive Date: 20220705
  Receipt Date: 20220713
  Transmission Date: 20221026
  Serious: Yes (Other)
  Sender: FDA-Public Use
  Company Number: US-INCYTE CORPORATION-2022IN006355

PATIENT

DRUGS (2)
  1. JAKAFI [Suspect]
     Active Substance: RUXOLITINIB
     Indication: Myelofibrosis
     Dosage: UNK
     Route: 065
     Dates: end: 20220609
  2. JAKAFI [Suspect]
     Active Substance: RUXOLITINIB
     Dosage: 5 MG QAM AND 10 MG (TWO 5 MG TABS) QPM
     Route: 048
     Dates: start: 20190101, end: 20220701

REACTIONS (6)
  - Neoplasm malignant [Unknown]
  - Depression [Unknown]
  - Asthenia [Unknown]
  - Product supply issue [Unknown]
  - Product distribution issue [Unknown]
  - Therapeutic response unexpected [Unknown]
